FAERS Safety Report 9483960 (Version 2)
Quarter: 2013Q3

REPORT INFORMATION
  Report Type: Report from Study
  Country: CN (occurrence: CN)
  Receive Date: 20130828
  Receipt Date: 20130828
  Transmission Date: 20140515
  Serious: Yes (Hospitalization)
  Sender: FDA-Public Use
  Company Number: PHHO2010CN08925

PATIENT
  Age: 71 Year
  Sex: Male
  Weight: 78 kg

DRUGS (4)
  1. ALISKIREN [Suspect]
     Indication: CARDIOVASCULAR DISORDER
     Route: 048
     Dates: start: 20090331
  2. INSULIN [Concomitant]
     Dates: start: 200712
  3. LACIDIPINE [Concomitant]
     Dates: start: 200712
  4. ENALAPRIL [Concomitant]
     Dates: start: 200811

REACTIONS (5)
  - Vertigo [Recovered/Resolved]
  - Concomitant disease progression [Recovered/Resolved]
  - Diabetes mellitus [Recovered/Resolved]
  - Diabetic nephropathy [Recovered/Resolved]
  - Hypertension [Recovered/Resolved]
